FAERS Safety Report 5488889-9 (Version None)
Quarter: 2007Q4

REPORT INFORMATION
  Report Type: 
  Country: None (occurrence: None)
  Receive Date: 20071017
  Receipt Date: 20071011
  Transmission Date: 20080405
  Serious: Yes (Hospitalization, Other)
  Sender: FDA-Public Use
  Company Number: US-SHR-US-2007-030636

PATIENT
  Age: 38 Year
  Sex: Female
  Weight: 91.156 kg

DRUGS (9)
  1. MAGNEVIST [Suspect]
     Dosage: 20 ML, 1 DOSE VIA POWER INJECTOR
     Route: 042
     Dates: start: 20070814, end: 20070814
  2. INDERAL [Concomitant]
     Dosage: 80 MG, 1X/DAY
  3. DITROPAN                                /USA/ [Concomitant]
     Dosage: 10 MG, 1X/DAY
  4. ELMIRON [Concomitant]
     Dosage: 20 MG, 2X/DAY
     Route: 048
  5. MAXALT                                  /USA/ [Concomitant]
     Indication: MIGRAINE
     Dosage: 5 MG, AS REQ'D
     Route: 048
  6. MACRODANTIN [Concomitant]
     Dosage: 100 MG, 1X/DAY
     Route: 048
  7. TYLOX [Concomitant]
     Indication: PAIN
     Dosage: 5/500, AS REQ'D
     Route: 048
  8. FOLIC ACID [Concomitant]
     Dosage: 400 MG, 1X/DAY
     Route: 048
  9. ACIPHEX [Concomitant]

REACTIONS (12)
  - ANAPHYLACTIC SHOCK [None]
  - CHEST PAIN [None]
  - COLD SWEAT [None]
  - DIZZINESS [None]
  - DYSPNOEA [None]
  - HYPOTENSION [None]
  - LOSS OF CONSCIOUSNESS [None]
  - PALLOR [None]
  - PULMONARY OEDEMA [None]
  - RESPIRATORY FAILURE [None]
  - THROAT TIGHTNESS [None]
  - VOMITING [None]
